FAERS Safety Report 9812565 (Version 2)
Quarter: 2014Q1

REPORT INFORMATION
  Report Type: Spontaneous
  Country: DE (occurrence: DE)
  Receive Date: 20140113
  Receipt Date: 20140227
  Transmission Date: 20141002
  Serious: No
  Sender: FDA-Public Use
  Company Number: DE-JNJFOC-20140105786

PATIENT
  Age: 45 Year
  Sex: Female

DRUGS (1)
  1. YANTIL RETARD RETARDTABLETTEN [Suspect]
     Indication: PAIN
     Route: 048
     Dates: start: 201311

REACTIONS (5)
  - Dysphonia [Not Recovered/Not Resolved]
  - Dysphonia [Not Recovered/Not Resolved]
  - Dry mouth [Not Recovered/Not Resolved]
  - Candida infection [Not Recovered/Not Resolved]
  - Aphonia [Not Recovered/Not Resolved]
